FAERS Safety Report 13669830 (Version 1)
Quarter: 2017Q2

REPORT INFORMATION
  Report Type: Spontaneous
  Country: US (occurrence: US)
  Receive Date: 20170620
  Receipt Date: 20170620
  Transmission Date: 20170830
  Serious: No
  Sender: FDA-Public Use
  Company Number: US-BRAEBURN PHARMACEUTICALS, INC.-2017BBN00038

PATIENT
  Sex: Female

DRUGS (1)
  1. PROBUPHINE [Suspect]
     Active Substance: BUPRENORPHINE HYDROCHLORIDE
     Dosage: 4 DOSAGE UNITS, UNK
     Route: 059
     Dates: start: 20170425

REACTIONS (1)
  - Implant site swelling [Recovering/Resolving]

NARRATIVE: CASE EVENT DATE: 2017
